FAERS Safety Report 8310457-1 (Version None)
Quarter: 2012Q2

REPORT INFORMATION
  Report Type: 
  Country: None (occurrence: None)
  Receive Date: 20120425
  Receipt Date: 20120412
  Transmission Date: 20120825
  Serious: Yes (Hospitalization)
  Sender: FDA-Public Use
  Company Number: US-ROCHE-1042786

PATIENT
  Age: 64 Year
  Sex: Female
  Weight: 56.7 kg

DRUGS (5)
  1. CARBOPLATIN [Suspect]
     Indication: OVARIAN EPITHELIAL CANCER
     Dosage: AUC = 6, DATE OF LAST DOSE PRIOR TO SAE: 03/JAN/2012, LAST ADMINISTERED DATE BEFORE AGITATION, CONFU
     Route: 042
     Dates: start: 20111122
  2. AVASTIN [Suspect]
     Indication: OVARIAN EPITHELIAL CANCER
     Dosage: DOSE HELD FOR PRIOR TO DEBULKING SURGERY. LAST ADMINISTERED DATE BEFORE AGITATION, CONFUSION AND COG
     Route: 042
     Dates: start: 20111122
  3. PACLITAXEL [Suspect]
     Indication: OVARIAN EPITHELIAL CANCER
     Dosage: WEEKLY DOSE: 128 MG, DATE OF LAST DOSE PRIOR TO SAE: 17/JAN/2012, LAST ADMINISTERED DATE BEFORE AGIT
     Route: 042
     Dates: start: 20111122
  4. LORAZEPAM [Concomitant]
     Indication: PRODUCT USED FOR UNKNOWN INDICATION
  5. SCOPOLAMINE [Concomitant]
     Indication: PRODUCT USED FOR UNKNOWN INDICATION

REACTIONS (9)
  - BLOOD CREATININE INCREASED [None]
  - HYPOMAGNESAEMIA [None]
  - VOMITING [None]
  - AGITATION [None]
  - CONFUSIONAL STATE [None]
  - DEHYDRATION [None]
  - COGNITIVE DISORDER [None]
  - NAUSEA [None]
  - HYPOKALAEMIA [None]
